FAERS Safety Report 25575838 (Version 1)
Quarter: 2025Q3

REPORT INFORMATION
  Report Type: Spontaneous
  Country: EU (occurrence: EU)
  Receive Date: 20250718
  Receipt Date: 20250718
  Transmission Date: 20251020
  Serious: Yes (Hospitalization, Other)
  Sender: AUROBINDO
  Company Number: EU-BoehringerIngelheim-2025-BI-024769

PATIENT
  Age: 69 Year
  Sex: Male
  Weight: 85 kg

DRUGS (11)
  1. NINTEDANIB [Suspect]
     Active Substance: NINTEDANIB
     Indication: Interstitial lung disease
     Dosage: 150 MILLIGRAM, TWO TIMES A DAY
     Route: 065
  2. NINTEDANIB [Suspect]
     Active Substance: NINTEDANIB
     Dosage: 150 MILLIGRAM, TWO TIMES A DAY
     Route: 065
     Dates: start: 20190630, end: 20190717
  3. AMOXICILLIN\CLAVULANIC ACID [Suspect]
     Active Substance: AMOXICILLIN\CLAVULANIC ACID
     Indication: Product used for unknown indication
     Route: 065
  4. AMLODIPINE BESYLATE\VALSARTAN [Concomitant]
     Active Substance: AMLODIPINE BESYLATE\VALSARTAN
     Indication: Product used for unknown indication
     Dosage: UNK UNK, ONCE A DAY(AMLODIPINE+VALSARTAN 5/160 MG (1+0+0) )
     Route: 065
  5. ALLOPURINOL [Concomitant]
     Active Substance: ALLOPURINOL
     Indication: Product used for unknown indication
     Dosage: 300 MILLIGRAM, ONCE A DAY(ALLOPURINOL 300MG (1/2+0+0))
     Route: 065
  6. LEVOTHYROXINE SODIUM [Concomitant]
     Active Substance: LEVOTHYROXINE SODIUM
     Indication: Product used for unknown indication
     Dosage: 0.11 MILLIGRAM, ONCE A DAY(LEVOTHYROXINE SODIUM 0.112 MG (1+0+0))
     Route: 065
  7. LORAZEPAM [Concomitant]
     Active Substance: LORAZEPAM
     Indication: Product used for unknown indication
     Dosage: 2.5 MILLIGRAM, ONCE A DAY(LORAZEPAM 2.5MG (0+0+1))
     Route: 065
  8. METFORMIN\SITAGLIPTIN [Concomitant]
     Active Substance: METFORMIN\SITAGLIPTIN
     Indication: Product used for unknown indication
     Dosage: UNK UNK, TWO TIMES A DAY(METFORMIN+SITAGLIPTIN 50/850 MG (1+0+1))
     Route: 065
  9. MYCOPHENOLATE MOFETIL [Concomitant]
     Active Substance: MYCOPHENOLATE MOFETIL
     Indication: Hypersensitivity pneumonitis
     Dosage: 250 MILLIGRAM, TWO TIMES A DAY(MYCOPHENOLATE MOFETIL 250 MG BID } INCREASED TO 1G BID (OCTOBER 2017)
     Route: 065
     Dates: start: 201710, end: 201710
  10. MYCOPHENOLATE MOFETIL [Concomitant]
     Active Substance: MYCOPHENOLATE MOFETIL
     Dosage: 1 GRAM, TWO TIMES A DAY(MYCOPHENOLATE MOFETIL 250 MG BID } INCREASED TO 1G BID (OCTOBER 2017)
     Route: 065
     Dates: start: 201710, end: 201907
  11. OMEPRAZOLE [Concomitant]
     Active Substance: OMEPRAZOLE
     Indication: Product used for unknown indication
     Dosage: 40 MILLIGRAM, ONCE A DAY(OMEPRAZOLE 40 MG (1+0+0))
     Route: 065

REACTIONS (6)
  - Idiopathic pulmonary fibrosis [Unknown]
  - Respiratory distress [Unknown]
  - Cough [Not Recovered/Not Resolved]
  - Physical disability [Unknown]
  - Transaminases abnormal [Recovered/Resolved]
  - Dyspnoea exertional [Unknown]

NARRATIVE: CASE EVENT DATE: 20190101
